FAERS Safety Report 8999991 (Version 1)
Quarter: 2013Q1

REPORT INFORMATION
  Report Type: Spontaneous
  Country: FR (occurrence: FR)
  Receive Date: 20130102
  Receipt Date: 20130102
  Transmission Date: 20140127
  Serious: Yes (Hospitalization, Other)
  Sender: FDA-Public Use
  Company Number: FR-PFIZER INC-2012331768

PATIENT
  Age: 102 Year
  Sex: Female

DRUGS (8)
  1. ALDACTONE [Suspect]
     Dosage: 25 MG, DAILY
     Route: 048
     Dates: start: 2002, end: 201209
  2. CRESTOR [Suspect]
     Dosage: 20 MG, DAILY
     Route: 048
     Dates: end: 201209
  3. ESIDREX [Suspect]
     Dosage: 25 MG, DAILY
     Route: 048
     Dates: start: 2002, end: 201209
  4. GLUCOPHAGE [Concomitant]
     Dosage: 1000 MG, DAILY
     Route: 048
     Dates: start: 2007
  5. JANUVIA [Concomitant]
     Dosage: 100 MG, DAILY
     Route: 048
     Dates: start: 2007
  6. AMLOR [Concomitant]
     Dosage: 5 MG, 1X/DAY
     Route: 048
     Dates: start: 2007
  7. BISOPROLOL [Concomitant]
     Dosage: 5 MG, DAILY
     Route: 048
  8. INEXIUM [Concomitant]
     Dosage: 20 MG, DAILY
     Route: 048
     Dates: start: 2010, end: 201209

REACTIONS (5)
  - Rhabdomyolysis [Recovered/Resolved]
  - Renal failure acute [Recovered/Resolved]
  - Pyelonephritis acute [Unknown]
  - Diarrhoea [Recovered/Resolved]
  - Vomiting [Recovered/Resolved]
